FAERS Safety Report 9109289 (Version 2)
Quarter: 2013Q1

REPORT INFORMATION
  Report Type: Spontaneous
  Country: US (occurrence: US)
  Receive Date: 20130222
  Receipt Date: 20130305
  Transmission Date: 20140127
  Serious: Yes (Death, Other)
  Sender: FDA-Public Use
  Company Number: US-PFIZER INC-2011292075

PATIENT
  Age: 34 Year
  Sex: Male

DRUGS (2)
  1. OXYCODONE HYDROCHLORIDE [Suspect]
     Indication: BACK PAIN
     Dosage: UNK
     Route: 065
  2. MORPHINE SULFATE [Suspect]
     Indication: BACK PAIN
     Dosage: UNK
     Route: 065

REACTIONS (3)
  - Gun shot wound [Fatal]
  - Victim of homicide [Fatal]
  - Drug dependence [Unknown]
